FAERS Safety Report 7304017-9 (Version None)
Quarter: 2011Q1

REPORT INFORMATION
  Report Type: 
  Country: None (occurrence: None)
  Receive Date: 20110221
  Receipt Date: 20110208
  Transmission Date: 20110831
  Serious: Yes (Hospitalization)
  Sender: FDA-Public Use
  Company Number: DE-MERCK-1101DEU00029

PATIENT
  Age: 48 Year
  Sex: Female
  Weight: 73 kg

DRUGS (5)
  1. LOVASTATIN [Suspect]
     Indication: TYPE IIA HYPERLIPIDAEMIA
     Route: 048
  2. ROSUVASTATIN CALCIUM [Suspect]
     Indication: TYPE IIA HYPERLIPIDAEMIA
     Route: 048
     Dates: start: 20090501, end: 20090101
  3. ZOCOR [Suspect]
     Indication: TYPE IIA HYPERLIPIDAEMIA
     Route: 048
  4. FLUVASTATIN SODIUM [Suspect]
     Indication: TYPE IIA HYPERLIPIDAEMIA
     Route: 048
  5. ATORVASTATIN CALCIUM [Suspect]
     Indication: TYPE IIA HYPERLIPIDAEMIA
     Route: 048
     Dates: start: 20100621, end: 20100101

REACTIONS (5)
  - CYSTITIS [None]
  - MYALGIA [None]
  - ARTHROPATHY [None]
  - CORONARY ARTERY DISEASE [None]
  - MUSCLE DISORDER [None]
